FAERS Safety Report 15017576 (Version 2)
Quarter: 2018Q2

REPORT INFORMATION
  Report Type: Spontaneous
  Country: US (occurrence: US)
  Receive Date: 20180615
  Receipt Date: 20180629
  Transmission Date: 20180711
  Serious: Yes (Other)
  Sender: FDA-Public Use
  Company Number: US-ASTRAZENECA-2018SE75466

PATIENT
  Age: 19461 Day
  Sex: Male
  Weight: 141.1 kg

DRUGS (3)
  1. LANTUS [Concomitant]
     Active Substance: INSULIN GLARGINE
     Indication: TYPE 2 DIABETES MELLITUS
     Dates: start: 2017
  2. BYDUREON [Suspect]
     Active Substance: EXENATIDE
     Indication: TYPE 2 DIABETES MELLITUS
     Route: 058
  3. XIGDUO XR [Suspect]
     Active Substance: DAPAGLIFLOZIN PROPANEDIOL\METFORMIN HYDROCHLORIDE
     Indication: TYPE 2 DIABETES MELLITUS
     Dosage: DAILY
     Route: 048
     Dates: start: 2015, end: 2017

REACTIONS (9)
  - Weight fluctuation [Unknown]
  - Underdose [Unknown]
  - Infection [Recovered/Resolved]
  - Renal impairment [Unknown]
  - Lymphoedema [Recovered/Resolved]
  - Colour blindness [Unknown]
  - Device malfunction [Unknown]
  - Renal cancer [Unknown]
  - Body height decreased [Unknown]

NARRATIVE: CASE EVENT DATE: 20160710
